FAERS Safety Report 15702446 (Version 2)
Quarter: 2019Q1

REPORT INFORMATION
  Report Type: Report from Study
  Country: FR (occurrence: FR)
  Receive Date: 20181210
  Receipt Date: 20190105
  Transmission Date: 20190417
  Serious: Yes (Hospitalization, Other)
  Sender: FDA-Public Use
  Company Number: FR-AUROBINDO-AUR-APL-2018-019939

PATIENT
  Age: 63 Year
  Sex: Male

DRUGS (8)
  1. CYTARABINE. [Suspect]
     Active Substance: CYTARABINE
     Indication: DIFFUSE LARGE B-CELL LYMPHOMA STAGE II
     Dosage: SALVAGE THERAPY (R-DHAO) (3 CYCLES)
     Route: 065
  2. ARACYTINE [Concomitant]
     Active Substance: CYTARABINE
     Indication: DIFFUSE LARGE B-CELL LYMPHOMA STAGE II
     Dosage: 200 MILLIGRAM/SQ. METER, CYCLICAL (D-6)
     Route: 065
  3. OXALIPLATIN. [Suspect]
     Active Substance: OXALIPLATIN
     Indication: DIFFUSE LARGE B-CELL LYMPHOMA STAGE II
     Dosage: SALVAGE THERAPY (R-DHAO) (3 CYCLES)
     Route: 065
  4. BICNU [Concomitant]
     Active Substance: CARMUSTINE
     Indication: DIFFUSE LARGE B-CELL LYMPHOMA STAGE II
     Dosage: 300 MILLIGRAM/SQ. METER, CYCLICAL (D-7)
     Route: 065
  5. DEXAMETHASONE. [Suspect]
     Active Substance: DEXAMETHASONE
     Indication: DIFFUSE LARGE B-CELL LYMPHOMA STAGE II
     Dosage: SALVAGE THERAPY (R-DHAO) (3 CYCLES)
     Route: 065
  6. RITUXIMAB. [Suspect]
     Active Substance: RITUXIMAB
     Indication: DIFFUSE LARGE B-CELL LYMPHOMA STAGE II
     Dosage: SALVAGE THERAPY (R-DHAO) (3 CYCLES)
     Route: 065
  7. MELPHALAN. [Concomitant]
     Active Substance: MELPHALAN
     Indication: DIFFUSE LARGE B-CELL LYMPHOMA STAGE II
     Dosage: 140 MILLIGRAM/SQ. METER, CYCLICAL (D-2)
     Route: 065
  8. ETOPOPHOS [Concomitant]
     Active Substance: ETOPOSIDE PHOSPHATE
     Indication: DIFFUSE LARGE B-CELL LYMPHOMA STAGE II
     Dosage: 200 MILLIGRAM/SQ. METER, CYCLICAL (D-6)
     Route: 065

REACTIONS (8)
  - Cholestasis [Recovered/Resolved]
  - Blood bilirubin increased [Recovered/Resolved]
  - Oedema [Recovered/Resolved]
  - Weight increased [Recovered/Resolved]
  - Transaminases increased [Recovered/Resolved]
  - Venoocclusive liver disease [Recovered/Resolved]
  - Hepatomegaly [Recovered/Resolved]
  - Ascites [Recovered/Resolved]
